FAERS Safety Report 24948318 (Version 2)
Quarter: 2025Q1

REPORT INFORMATION
  Report Type: Spontaneous
  Country: US (occurrence: US)
  Receive Date: 20250210
  Receipt Date: 20250307
  Transmission Date: 20250409
  Serious: Yes (Death, Hospitalization, Other)
  Sender: SANOFI AVENTIS
  Company Number: US-SA-2025SA038453

PATIENT
  Age: 4 Year
  Sex: Female

DRUGS (19)
  1. DUPIXENT [Suspect]
     Active Substance: DUPILUMAB
     Indication: Dermatitis atopic
     Route: 058
     Dates: start: 20241106, end: 2024
  2. DUPIXENT [Suspect]
     Active Substance: DUPILUMAB
     Dosage: 300 MG, QM
     Route: 058
     Dates: start: 20241213, end: 202501
  3. FLONASE [Concomitant]
     Active Substance: FLUTICASONE PROPIONATE
  4. ASTELIN [Concomitant]
     Active Substance: AZELASTINE HYDROCHLORIDE
  5. SYMBICORT [Concomitant]
     Active Substance: BUDESONIDE\FORMOTEROL FUMARATE DIHYDRATE
  6. EPIPEN [Concomitant]
     Active Substance: EPINEPHRINE
     Indication: Premedication
  7. PULMICORT TURBUHALER [Concomitant]
     Active Substance: BUDESONIDE
  8. SODIUM CHLORIDE [Concomitant]
     Active Substance: SODIUM CHLORIDE
  9. POTASSIUM CHLORIDE [Concomitant]
     Active Substance: POTASSIUM CHLORIDE
  10. CAYSTON [Concomitant]
     Active Substance: AZTREONAM
  11. LEVOCETIRIZINE [Concomitant]
     Active Substance: LEVOCETIRIZINE
  12. OPTIVAR [Concomitant]
     Active Substance: AZELASTINE HYDROCHLORIDE
  13. TOBRAMYCIN [Concomitant]
     Active Substance: TOBRAMYCIN
  14. CAROSPIR [Concomitant]
     Active Substance: SPIRONOLACTONE
  15. LOPRESSOR [Concomitant]
     Active Substance: METOPROLOL TARTRATE
  16. CORTEF [Concomitant]
     Active Substance: HYDROCORTISONE
  17. DIURIL [Concomitant]
     Active Substance: CHLOROTHIAZIDE
  18. PULMOZYME [Concomitant]
     Active Substance: DORNASE ALFA
  19. ALBUTEROL [Concomitant]
     Active Substance: ALBUTEROL

REACTIONS (10)
  - Cardiogenic shock [Fatal]
  - Tachycardia [Fatal]
  - Respiratory syncytial virus infection [Fatal]
  - Haemodynamic instability [Fatal]
  - Hypotension [Fatal]
  - Clostridium difficile infection [Fatal]
  - Norovirus infection [Fatal]
  - Pyrexia [Fatal]
  - Oedema [Fatal]
  - Injection site erythema [Recovered/Resolved]

NARRATIVE: CASE EVENT DATE: 20240101
